FAERS Safety Report 16489094 (Version 2)
Quarter: 2019Q2

REPORT INFORMATION
  Report Type: Spontaneous
  Country: US (occurrence: US)
  Receive Date: 20190628
  Receipt Date: 20190628
  Transmission Date: 20190711
  Serious: No
  Sender: FDA-Public Use
  Company Number: US-SHIRE-US201920742

PATIENT
  Sex: Female

DRUGS (2)
  1. CARBATROL [Suspect]
     Active Substance: CARBAMAZEPINE
     Indication: NEURALGIA
     Dosage: 400 MILLIGRAM, 3X/DAY:TID
     Route: 065
  2. CARBATROL [Suspect]
     Active Substance: CARBAMAZEPINE
     Indication: FACIAL NERVE DISORDER

REACTIONS (2)
  - Product quality issue [Unknown]
  - Drug ineffective [Recovering/Resolving]
